FAERS Safety Report 9148104 (Version 1)
Quarter: 2013Q1

REPORT INFORMATION
  Report Type: Spontaneous
  Country: US (occurrence: US)
  Receive Date: 20130308
  Receipt Date: 20130308
  Transmission Date: 20140127
  Serious: Yes (Other)
  Sender: FDA-Public Use
  Company Number: US-AMGEN-USASP2013000412

PATIENT
  Age: 68 Year
  Sex: Female
  Weight: 70.3 kg

DRUGS (9)
  1. PROCRIT [Suspect]
     Indication: HAEMOGLOBIN DECREASED
     Dosage: ONCE EVENY TWO TO THREE WEEKS
     Route: 058
     Dates: start: 200111
  2. PROCRIT [Suspect]
     Indication: ANAEMIA
  3. PROCRIT [Suspect]
     Indication: ESSENTIAL THROMBOCYTHAEMIA
  4. ASA [Concomitant]
     Indication: PLATELET DISORDER
     Dosage: 81 MG, QD
     Route: 048
  5. LEVOTHYROXINE [Concomitant]
     Indication: THYROID DISORDER
     Dosage: 150 MUG, QD
     Route: 048
  6. HYDROXYUREA [Concomitant]
     Indication: NEOPLASM MALIGNANT
     Dosage: 500 MG, ONCE OR TWICE A DAY
     Route: 048
  7. ATENOLOL [Concomitant]
     Indication: HYPERTENSION
     Dosage: 50 MG, QD
     Route: 048
  8. ATENOLOL [Concomitant]
     Dosage: 25 MG, QD
     Route: 048
  9. HYDROCHLOROTHIAZIDE [Concomitant]
     Indication: HYPERTENSION
     Dosage: 50 MG, QD
     Route: 048

REACTIONS (7)
  - Gastric haemorrhage [Unknown]
  - Gastrooesophageal reflux disease [Unknown]
  - Haematochezia [Unknown]
  - Urinary incontinence [Unknown]
  - Anaemia [Unknown]
  - Therapeutic response unexpected [Not Recovered/Not Resolved]
  - Unevaluable event [Unknown]
